FAERS Safety Report 22256741 (Version 4)
Quarter: 2023Q2

REPORT INFORMATION
  Report Type: Report from Study
  Country: US (occurrence: US)
  Receive Date: 20230426
  Receipt Date: 20230605
  Transmission Date: 20230722
  Serious: Yes (Hospitalization, Other)
  Sender: FDA-Public Use
  Company Number: US-SA-SAC20230421001241

PATIENT
  Age: 73 Year
  Sex: Male
  Weight: 86.55 kg

DRUGS (11)
  1. ISATUXIMAB [Suspect]
     Active Substance: ISATUXIMAB
     Indication: Plasma cell myeloma
     Dosage: 10 MG/KG, BIW
     Route: 041
     Dates: start: 20220915, end: 20220915
  2. ISATUXIMAB [Suspect]
     Active Substance: ISATUXIMAB
     Dosage: 10 MG/KG, BIW
     Route: 041
     Dates: start: 20230411, end: 20230411
  3. CARFILZOMIB [Suspect]
     Active Substance: CARFILZOMIB
     Indication: Plasma cell myeloma
     Dosage: 70 MG/M2 (FREQUENCY: DAY 1, 8, AND 15 OF 28 DAY CYCLE)
     Route: 041
     Dates: start: 20220915, end: 20220915
  4. CARFILZOMIB [Suspect]
     Active Substance: CARFILZOMIB
     Dosage: 70 MG/M2 (FREQUENCY: DAY 1, 8, AND 15 OF 28 DAY CYCLE)
     Route: 041
     Dates: start: 20230411, end: 20230411
  5. ZYRTEC [Concomitant]
     Active Substance: CETIRIZINE HYDROCHLORIDE
     Dosage: 10 MG
  6. DECADRON [Concomitant]
     Active Substance: DEXAMETHASONE
     Dosage: 20 MG
  7. PEPCID [Concomitant]
     Active Substance: FAMOTIDINE
     Dosage: 20 MG
  8. KYTRIL [Concomitant]
     Active Substance: GRANISETRON HYDROCHLORIDE
     Dosage: 1 MG
  9. ATIVAN [Concomitant]
     Active Substance: LORAZEPAM
     Dosage: 1 MG
  10. SODIUM CHLORIDE [Concomitant]
     Active Substance: SODIUM CHLORIDE
     Dosage: 50 ML
  11. COVID-19 VACCINE MRNA [Concomitant]
     Dosage: 0 MCG/0.3 ML VACCINE INJECTION BOOSTER 0.3 ML

REACTIONS (2)
  - Parainfluenzae virus infection [Unknown]
  - Skin cancer [Unknown]

NARRATIVE: CASE EVENT DATE: 20230419
